FAERS Safety Report 8350193-9 (Version None)
Quarter: 2012Q2

REPORT INFORMATION
  Report Type: 
  Country: None (occurrence: None)
  Receive Date: 20120510
  Receipt Date: 20120504
  Transmission Date: 20120825
  Serious: Yes (Hospitalization)
  Sender: FDA-Public Use
  Company Number: FR-ROCHE-1066149

PATIENT
  Sex: Female

DRUGS (7)
  1. PARLODEL [Suspect]
     Indication: PARKINSON'S DISEASE
     Route: 048
  2. BICIRKAN [Suspect]
     Indication: PRODUCT USED FOR UNKNOWN INDICATION
     Route: 048
  3. TROSPIUM CHLORIDE [Suspect]
     Indication: PRODUCT USED FOR UNKNOWN INDICATION
     Route: 048
  4. STALEVO 100 [Suspect]
     Indication: PARKINSON'S DISEASE
     Route: 048
  5. MODOPAR [Suspect]
     Indication: PARKINSON'S DISEASE
     Dosage: 62.5 MG
     Route: 048
  6. CLONAZEPAM [Suspect]
     Indication: PRODUCT USED FOR UNKNOWN INDICATION
     Route: 048
  7. AMANTADINE HCL [Suspect]
     Indication: PARKINSON'S DISEASE
     Dosage: 100 MG
     Route: 048

REACTIONS (2)
  - PULMONARY EMBOLISM [None]
  - ATRIAL FIBRILLATION [None]
